FAERS Safety Report 15590457 (Version 1)
Quarter: 2018Q4

REPORT INFORMATION
  Report Type: Spontaneous
  Country: AT (occurrence: AT)
  Receive Date: 20181106
  Receipt Date: 20181106
  Transmission Date: 20190205
  Serious: Yes (Hospitalization)
  Sender: FDA-Public Use
  Company Number: AT-ACCORD-091374

PATIENT
  Age: 81 Year
  Sex: Female

DRUGS (5)
  1. PREDNISOLONE. [Suspect]
     Active Substance: PREDNISOLONE
     Indication: RHEUMATOID ARTHRITIS
     Dosage: 15MG/DAY
     Route: 048
     Dates: end: 201712
  2. CICLOSPORIN [Suspect]
     Active Substance: CYCLOSPORINE
     Indication: RHEUMATOID ARTHRITIS
     Dosage: 50MG/DAY
     Route: 048
     Dates: start: 201705, end: 201712
  3. CICLOSPORIN [Suspect]
     Active Substance: CYCLOSPORINE
     Indication: MYOSITIS
     Dosage: 50MG/DIE
     Route: 048
     Dates: start: 201705, end: 201712
  4. METHOTREXATE. [Suspect]
     Active Substance: METHOTREXATE
     Indication: MYOSITIS
     Dosage: 15MG/WEEK
     Route: 058
     Dates: end: 201712
  5. PREDNISOLONE. [Suspect]
     Active Substance: PREDNISOLONE
     Indication: MYOSITIS
     Dosage: 15MG/DIE
     Route: 048
     Dates: end: 201712

REACTIONS (1)
  - Bartholin^s abscess [Recovered/Resolved]

NARRATIVE: CASE EVENT DATE: 20171206
